FAERS Safety Report 10502681 (Version 3)
Quarter: 2015Q3

REPORT INFORMATION
  Report Type: Spontaneous
  Country: US (occurrence: US)
  Receive Date: 20141007
  Receipt Date: 20150803
  Transmission Date: 20151125
  Serious: No
  Sender: FDA-Public Use
  Company Number: US-PFIZER INC-2014274741

PATIENT
  Age: 66 Year
  Sex: Female
  Weight: 73.92 kg

DRUGS (1)
  1. VENLAFAXINE HCL [Suspect]
     Active Substance: VENLAFAXINE HYDROCHLORIDE
     Dosage: UNK

REACTIONS (3)
  - Poor quality sleep [Recovered/Resolved]
  - Feeling abnormal [Unknown]
  - Muscle twitching [Unknown]
